FAERS Safety Report 9441864 (Version 1)
Quarter: 2013Q3

REPORT INFORMATION
  Report Type: Spontaneous
  Country: US (occurrence: US)
  Receive Date: 20130806
  Receipt Date: 20130806
  Transmission Date: 20140515
  Serious: No
  Sender: FDA-Public Use
  Company Number: US-JNJFOC-20130714308

PATIENT
  Age: 40 Year
  Sex: Female
  Weight: 70.85 kg

DRUGS (5)
  1. SANDOZ FENTANYL TRANSDERMAL SYSTEM [Suspect]
     Indication: BACK PAIN
     Route: 062
     Dates: start: 20130718
  2. GABAPENTIN [Concomitant]
     Indication: MUSCLE SPASMS
     Route: 048
     Dates: start: 201304
  3. ALPRAZOLAM [Concomitant]
     Indication: ANXIETY
     Route: 048
  4. SEROQUEL [Concomitant]
     Indication: SLEEP DISORDER
     Dosage: STRENGTH 100 MG
     Route: 048
     Dates: start: 2013
  5. SEROQUEL [Concomitant]
     Indication: SLEEP DISORDER
     Dosage: STRENGTH 400 MG
     Route: 048
     Dates: start: 2013

REACTIONS (4)
  - Wrong technique in drug usage process [Not Recovered/Not Resolved]
  - Wrong technique in drug usage process [Not Recovered/Not Resolved]
  - Product quality issue [Not Recovered/Not Resolved]
  - Back pain [Recovered/Resolved]
